FAERS Safety Report 6479559-9 (Version None)
Quarter: 2009Q4

REPORT INFORMATION
  Report Type: 
  Country: None (occurrence: None)
  Receive Date: 20091207
  Receipt Date: 20091207
  Transmission Date: 20100525
  Serious: Yes (Other)
  Sender: FDA-Public Use
  Company Number: None

PATIENT
  Age: 44 Year
  Sex: Female
  Weight: 53.5244 kg

DRUGS (2)
  1. PREDNISONE TAB [Suspect]
     Indication: EXPOSURE TO TOXIC AGENT
     Dosage: 40 MG QD FOR 5 DAYS PO 20 MG QD FOR 5 DAYS PO
     Route: 048
     Dates: start: 20090924, end: 20090928
  2. PREDNISONE TAB [Suspect]
     Indication: EXPOSURE TO TOXIC AGENT
     Dosage: 40 MG QD FOR 5 DAYS PO 20 MG QD FOR 5 DAYS PO
     Route: 048
     Dates: start: 20090929, end: 20091003

REACTIONS (4)
  - BLOOD GLUCOSE INCREASED [None]
  - DRUG EXPOSURE DURING PREGNANCY [None]
  - MENSTRUATION DELAYED [None]
  - PREGNANCY ON CONTRACEPTIVE [None]
